FAERS Safety Report 19099469 (Version 1)
Quarter: 2021Q2

REPORT INFORMATION
  Report Type: Other
  Country: JP (occurrence: JP)
  Receive Date: 20210407
  Receipt Date: 20210407
  Transmission Date: 20210717
  Serious: Yes (Other)
  Sender: FDA-Public Use
  Company Number: JP-ROCHE-2798870

PATIENT
  Age: 50 Year
  Sex: Female

DRUGS (6)
  1. CYCLOPHOSPHAMIDE HYDRATE [Concomitant]
     Active Substance: CYCLOPHOSPHAMIDE
  2. CYTARABINE. [Concomitant]
     Active Substance: CYTARABINE
  3. AZACITIDINE. [Concomitant]
     Active Substance: AZACITIDINE
  4. BUSULFAN. [Concomitant]
     Active Substance: BUSULFAN
  5. RITUXAN [Suspect]
     Active Substance: RITUXIMAB
     Indication: STEM CELL TRANSPLANT
     Route: 041
  6. IDARUBICIN HYDROCHLORIDE. [Concomitant]
     Active Substance: IDARUBICIN HYDROCHLORIDE

REACTIONS (2)
  - Off label use [Unknown]
  - Febrile neutropenia [Unknown]
